FAERS Safety Report 23590499 (Version 2)
Quarter: 2024Q1

REPORT INFORMATION
  Report Type: Spontaneous
  Country: JP (occurrence: JP)
  Receive Date: 20240304
  Receipt Date: 20240320
  Transmission Date: 20240409
  Serious: Yes (Other)
  Sender: FDA-Public Use
  Company Number: JP-JNJFOC-20240302075

PATIENT
  Age: 7 Decade

DRUGS (3)
  1. DARATUMUMAB [Suspect]
     Active Substance: DARATUMUMAB
     Indication: Product used for unknown indication
     Route: 058
  2. REVLIMID [Concomitant]
     Active Substance: LENALIDOMIDE
     Route: 048
  3. DEXAMETHASONE [Concomitant]
     Active Substance: DEXAMETHASONE
     Dosage: DOSE UNKNOWN
     Route: 065

REACTIONS (1)
  - Cytopenia [Recovered/Resolved]
